FAERS Safety Report 5167053-7 (Version None)
Quarter: 2006Q4

REPORT INFORMATION
  Report Type: 
  Country: None (occurrence: None)
  Receive Date: 20061207
  Receipt Date: 20060321
  Transmission Date: 20070319
  Serious: Yes (Hospitalization, Congenital Anomaly)
  Sender: FDA-Public Use
  Company Number: DE-BRISTOL-MYERS SQUIBB COMPANY-13426846

PATIENT
  Age: 21 Year
  Sex: Female
  Weight: 54 kg

DRUGS (6)
  1. ABILIFY [Suspect]
     Indication: SCHIZOPHRENIA, PARANOID TYPE
     Dosage: REDUCED TO 15 MG DAILY ON 21-MAR-2006
     Route: 048
     Dates: start: 20051229
  2. ZOLOFT [Suspect]
     Indication: DEPRESSION
     Route: 048
     Dates: end: 20060308
  3. DIPIPERON [Suspect]
     Indication: RESTLESSNESS
     Route: 048
     Dates: end: 20060308
  4. DIPIPERON [Suspect]
     Indication: SLEEP DISORDER
     Route: 048
     Dates: end: 20060308
  5. FOLCUR [Concomitant]
  6. JODID [Concomitant]

REACTIONS (4)
  - ALPHA 1 FOETOPROTEIN AMNIOTIC FLUID INCREASED [None]
  - MICROCEPHALY [None]
  - PREGNANCY [None]
  - SPINA BIFIDA [None]
